FAERS Safety Report 17210846 (Version 2)
Quarter: 2019Q4

REPORT INFORMATION
  Report Type: Report from Study
  Country: US (occurrence: US)
  Receive Date: 20191227
  Receipt Date: 20191231
  Transmission Date: 20200122
  Serious: Yes (Other)
  Sender: FDA-Public Use
  Company Number: US-GILEAD-2019-0444665

PATIENT
  Age: 19 Year
  Sex: Male

DRUGS (2)
  1. TOBRAMYCIN. [Suspect]
     Active Substance: TOBRAMYCIN
     Indication: CYSTIC FIBROSIS
     Dosage: 300MG, INHALATION, TWICE DAILY FOR 28 DAYS THEN OFF 28 DAYS
     Route: 055
     Dates: start: 20170928
  2. AZTREONAM LYSINE [Suspect]
     Active Substance: AZTREONAM LYSINE
     Indication: CYSTIC FIBROSIS
     Dosage: 1 VIAL 75MG, INHALATION, 3 TIMES DAILY FOR 28 DAYS THEN OFF 28 DAYS
     Route: 055
     Dates: start: 20170808

REACTIONS (2)
  - Cystic fibrosis [Not Recovered/Not Resolved]
  - Unevaluable event [Unknown]

NARRATIVE: CASE EVENT DATE: 20191218
